FAERS Safety Report 22532461 (Version 1)
Quarter: 2023Q2

REPORT INFORMATION
  Report Type: Report from Study
  Country: US (occurrence: US)
  Receive Date: 20230607
  Receipt Date: 20230607
  Transmission Date: 20230721
  Serious: Yes (Other)
  Sender: FDA-Public Use
  Company Number: US-PFIZER INC-PV202300099249

PATIENT
  Age: 42 Year
  Sex: Male

DRUGS (1)
  1. OXBRYTA [Suspect]
     Active Substance: VOXELOTOR
     Indication: Sickle cell disease
     Dosage: 1500 MG, DAILY
     Route: 048
     Dates: start: 20221201, end: 2023

REACTIONS (3)
  - Thrombosis [Recovering/Resolving]
  - Diarrhoea [Recovering/Resolving]
  - Haemorrhoids [Recovering/Resolving]
